FAERS Safety Report 7221490-5 (Version None)
Quarter: 2011Q1

REPORT INFORMATION
  Report Type: 
  Country: None (occurrence: None)
  Receive Date: 20110112
  Receipt Date: 20110103
  Transmission Date: 20110831
  Serious: Yes (Other)
  Sender: FDA-Public Use
  Company Number: PHHY2011US00475

PATIENT
  Sex: Female

DRUGS (4)
  1. RECLAST [Suspect]
     Dosage: UNK
     Dates: start: 20100501
  2. PANTOPRAZOLE SODIUM [Concomitant]
     Dosage: UNK
  3. FOSAMAX [Suspect]
     Dosage: UNK
  4. PROZAC [Concomitant]
     Dosage: 10 MG, UNK

REACTIONS (3)
  - BACK PAIN [None]
  - THROAT TIGHTNESS [None]
  - PAIN IN EXTREMITY [None]
